FAERS Safety Report 9557860 (Version 1)
Quarter: 2013Q3

REPORT INFORMATION
  Report Type: Spontaneous
  Country: US (occurrence: None)
  Receive Date: 20130724
  Receipt Date: 20130724
  Transmission Date: 20140515
  Serious: No
  Sender: FDA-Public Use
  Company Number: PHEH2013US007293

PATIENT
  Age: 39 Year
  Sex: Male

DRUGS (1)
  1. GILENYA [Suspect]
     Indication: MULTIPLE SCLEROSIS
     Route: 048
     Dates: start: 20130327

REACTIONS (3)
  - Fatigue [None]
  - Somnolence [None]
  - Blood pressure increased [None]
